FAERS Safety Report 21343771 (Version 1)
Quarter: 2022Q3

REPORT INFORMATION
  Report Type: Report from Study
  Country: RS (occurrence: RS)
  Receive Date: 20220916
  Receipt Date: 20220916
  Transmission Date: 20221027
  Serious: Yes (Life-Threatening, Other)
  Sender: FDA-Public Use
  Company Number: RS-TAKEDA-2022TUS064976

PATIENT
  Sex: Female

DRUGS (5)
  1. MARIBAVIR [Suspect]
     Active Substance: MARIBAVIR
     Indication: Cytomegalovirus infection
     Dosage: UNK
     Route: 065
     Dates: start: 20220610, end: 20220815
  2. PREVYMIS [Concomitant]
     Active Substance: LETERMOVIR
     Indication: Cytomegalovirus infection
     Dosage: UNK
     Route: 065
     Dates: start: 20220222, end: 20220310
  3. VALCYTE [Concomitant]
     Active Substance: VALGANCICLOVIR HYDROCHLORIDE
     Indication: Cytomegalovirus infection
     Dosage: UNK
     Route: 065
     Dates: start: 20220310
  4. VALCYTE [Concomitant]
     Active Substance: VALGANCICLOVIR HYDROCHLORIDE
     Dosage: UNK
     Route: 065
     Dates: start: 20220911
  5. FOSCAVIR [Concomitant]
     Active Substance: FOSCARNET SODIUM
     Indication: Cytomegalovirus infection
     Dosage: UNK
     Route: 065
     Dates: start: 20220909

REACTIONS (2)
  - Cytomegalovirus infection reactivation [Recovering/Resolving]
  - Pneumonia cytomegaloviral [Unknown]
